FAERS Safety Report 7907181-3 (Version None)
Quarter: 2011Q4

REPORT INFORMATION
  Report Type: 
  Country: None (occurrence: None)
  Receive Date: 20111110
  Receipt Date: 20111014
  Transmission Date: 20120403
  Serious: No
  Sender: FDA-Public Use
  Company Number: US-BAYER-2011-100118

PATIENT
  Sex: Female

DRUGS (2)
  1. YAZ [Suspect]
  2. DEPO-PROVERA [Concomitant]

REACTIONS (1)
  - ALOPECIA [None]
